FAERS Safety Report 5788059-0 (Version None)
Quarter: 2008Q2

REPORT INFORMATION
  Report Type: 
  Country: None (occurrence: None)
  Receive Date: 20080625
  Receipt Date: 20080613
  Transmission Date: 20081010
  Serious: Yes (Other)
  Sender: FDA-Public Use
  Company Number: FR-ELI_LILLY_AND_COMPANY-FR200805002048

PATIENT
  Age: 65 Year
  Sex: Male

DRUGS (4)
  1. CYMBALTA [Suspect]
     Indication: DEPRESSION
     Dosage: 60 MG, UNKNOWN
     Route: 048
     Dates: start: 20080207, end: 20080428
  2. BROMAZEPAM [Concomitant]
     Indication: ANXIOLYTIC THERAPY
     Dosage: 6 MG, UNKNOWN
     Route: 048
  3. TERCIAN [Concomitant]
     Indication: ANXIETY
     Dosage: 50 MG, DAILY (1/D)
     Route: 048
     Dates: start: 20070807
  4. ABILIFY [Concomitant]
     Indication: BIPOLAR DISORDER
     Dosage: 10 MG, DAILY (1/D)
     Route: 048
     Dates: start: 20070714

REACTIONS (1)
  - HEPATOCELLULAR INJURY [None]
